FAERS Safety Report 8289428-X (Version None)
Quarter: 2012Q2

REPORT INFORMATION
  Report Type: 
  Country: None (occurrence: None)
  Receive Date: 20120417
  Receipt Date: 20120411
  Transmission Date: 20120825
  Serious: Yes (Hospitalization, Other)
  Sender: FDA-Public Use
  Company Number: BR-SANOFI-AVENTIS-2012SA025505

PATIENT
  Age: 76 Year
  Sex: Male
  Weight: 90 kg

DRUGS (7)
  1. PROPRANOLOL [Suspect]
     Indication: BLOOD PRESSURE
     Route: 048
     Dates: end: 20120410
  2. ENALAPRIL MALEATE [Concomitant]
     Indication: BLOOD PRESSURE
     Route: 048
  3. LANTUS [Suspect]
     Route: 058
     Dates: start: 20110101
  4. SERTRALINE HYDROCHLORIDE [Concomitant]
     Indication: DEPRESSION
     Route: 048
  5. DIAZEPAM [Concomitant]
     Route: 048
  6. CLIKSTAR [Suspect]
     Indication: DEVICE THERAPY
     Dates: start: 20110101
  7. PROPRANOLOL [Suspect]
     Route: 048

REACTIONS (3)
  - HEART RATE DECREASED [None]
  - CARDIAC DISORDER [None]
  - URINARY TRACT INFECTION [None]
